FAERS Safety Report 17718391 (Version 6)
Quarter: 2020Q2

REPORT INFORMATION
  Report Type: Spontaneous
  Country: ES (occurrence: ES)
  Receive Date: 20200428
  Receipt Date: 20200625
  Transmission Date: 20200714
  Serious: Yes (Hospitalization)
  Sender: FDA-Public Use
  Company Number: ES-CELGENEUS-ESP-20200407799

PATIENT
  Age: 53 Year
  Sex: Male
  Weight: 68.5 kg

DRUGS (18)
  1. BORTEZOMIB. [Concomitant]
     Active Substance: BORTEZOMIB
     Indication: PLASMA CELL MYELOMA
     Route: 058
     Dates: start: 20190611
  2. LENALIDOMIDE [Suspect]
     Active Substance: LENALIDOMIDE
     Route: 048
     Dates: start: 2020
  3. PANTOPRAZOLE [Concomitant]
     Active Substance: PANTOPRAZOLE
     Indication: PROPHYLAXIS
     Dosage: 20 MILLIGRAM
     Route: 048
     Dates: start: 20190610
  4. CLEXANE [Concomitant]
     Active Substance: ENOXAPARIN SODIUM
     Indication: PROPHYLAXIS
     Dosage: 40 MILLIGRAM
     Route: 041
     Dates: start: 20190610
  5. HIDROXIL [Concomitant]
     Active Substance: ALUMINUM HYDROXIDE
     Indication: PROPHYLAXIS
     Route: 048
     Dates: start: 20190610
  6. ESCITALOPRAM [Concomitant]
     Active Substance: ESCITALOPRAM OXALATE
     Indication: PERSISTENT DEPRESSIVE DISORDER
     Dosage: 15 MILLIGRAM
     Route: 048
     Dates: start: 2009
  7. BORTEZOMIB. [Concomitant]
     Active Substance: BORTEZOMIB
     Route: 058
     Dates: start: 20200302, end: 20200316
  8. LENALIDOMIDE [Suspect]
     Active Substance: LENALIDOMIDE
     Indication: PLASMA CELL MYELOMA
     Route: 048
     Dates: start: 20190611, end: 20200322
  9. DARATUMUMAB [Concomitant]
     Active Substance: DARATUMUMAB
     Indication: PLASMA CELL MYELOMA
     Route: 058
     Dates: start: 20190611, end: 20200316
  10. MOTILIUM [Concomitant]
     Active Substance: DOMPERIDONE
     Indication: DYSPEPSIA
     Route: 048
     Dates: start: 20190618
  11. AMERIDE [Concomitant]
     Indication: HYPERTENSION
     Route: 048
     Dates: start: 201903
  12. ACICLOVIR [Concomitant]
     Active Substance: ACYCLOVIR
     Indication: ANTIVIRAL PROPHYLAXIS
     Dosage: 800 MILLIGRAM
     Route: 048
     Dates: start: 20190610
  13. PREDNISONE. [Concomitant]
     Active Substance: PREDNISONE
     Indication: GRAFT VERSUS HOST DISEASE
     Dosage: 20 MILLIGRAM
     Route: 048
     Dates: start: 201911
  14. MESALAZINE [Concomitant]
     Active Substance: MESALAMINE
     Indication: COLITIS ULCERATIVE
     Dosage: 3 GRAM
     Route: 048
     Dates: start: 2015
  15. DEXAMETHASONE. [Suspect]
     Active Substance: DEXAMETHASONE
     Indication: PLASMA CELL MYELOMA
     Route: 048
     Dates: start: 20190611, end: 20200313
  16. DEXAMETHASONE. [Suspect]
     Active Substance: DEXAMETHASONE
     Route: 048
     Dates: start: 2020
  17. BOI-K ASPARTICO [Concomitant]
     Active Substance: ASPARTIC ACID\POTASSIUM ASCORBATE
     Indication: HYPOKALAEMIA
     Route: 048
     Dates: start: 201901
  18. LEKOVIT CA [Concomitant]
     Active Substance: CALCIUM CARBONATE\CHOLECALCIFEROL
     Indication: PROPHYLAXIS
     Dosage: 1500 MILLIGRAM
     Route: 048
     Dates: start: 20190806

REACTIONS (2)
  - Intestinal obstruction [Recovered/Resolved]
  - Thrombocytopenia [Recovered/Resolved]

NARRATIVE: CASE EVENT DATE: 20200217
